FAERS Safety Report 7156865-6 (Version None)
Quarter: 2010Q4

REPORT INFORMATION
  Report Type: 
  Country: None (occurrence: None)
  Receive Date: 20101214
  Receipt Date: 20101130
  Transmission Date: 20110411
  Serious: Yes (Hospitalization)
  Sender: FDA-Public Use
  Company Number: PHFR2010GB05323

PATIENT
  Sex: Male

DRUGS (3)
  1. CLOZARIL [Suspect]
     Indication: SCHIZOPHRENIA
     Dosage: 50 MG DAILY
     Dates: start: 19910115
  2. CLOZARIL [Suspect]
     Dosage: 25 MG, QD
  3. CLOZARIL [Suspect]
     Route: 048
     Dates: start: 20010701

REACTIONS (6)
  - APPENDICITIS PERFORATED [None]
  - COLECTOMY [None]
  - COLON NEOPLASM [None]
  - DEPRESSED MOOD [None]
  - HAEMOGLOBIN DECREASED [None]
  - INTESTINAL ANASTOMOSIS [None]
